FAERS Safety Report 5658677-9 (Version None)
Quarter: 2008Q1

REPORT INFORMATION
  Report Type: 
  Country: None (occurrence: None)
  Receive Date: 20080310
  Receipt Date: 20070330
  Transmission Date: 20080703
  Serious: No
  Sender: FDA-Public Use
  Company Number: US-BAYER-200710983BCC

PATIENT
  Age: 84 Year
  Sex: Female
  Weight: 57 kg

DRUGS (4)
  1. ALEVE (CAPLET) [Suspect]
     Indication: BACK PAIN
     Dosage: TOTAL DAILY DOSE: 440 MG  UNIT DOSE: 220 MG
     Route: 048
     Dates: start: 20070330
  2. HIGH BLOOD PRESSURE MEDICATION [Concomitant]
  3. SYNTHROID [Concomitant]
  4. SALT PILL [Concomitant]

REACTIONS (1)
  - BACK PAIN [None]
